FAERS Safety Report 7837722 (Version 3)
Quarter: 2013Q4

REPORT INFORMATION
  Report Type: Spontaneous
  Country: US (occurrence: US)
  Receive Date: 20110302
  Receipt Date: 20131129
  Transmission Date: 20140711
  Serious: Yes (Hospitalization, Other)
  Sender: FDA-Public Use
  Company Number: US-PFIZER INC-2009305732

PATIENT
  Age: 42 Year
  Sex: Female

DRUGS (5)
  1. DILANTIN [Suspect]
     Indication: CONVULSION
     Dosage: 50 MG, 1X/DAY EVERY NIGHT AT BEDTIME
     Route: 048
     Dates: start: 20051205
  2. DILANTIN KAPSEAL [Suspect]
     Indication: CONVULSION
     Dosage: 300 MG, 1X/DAY
     Route: 048
     Dates: start: 20080309, end: 20080311
  3. TYLENOL [Concomitant]
     Dosage: 650 MG, EVERY 4 HRS AS NEEDED
     Route: 048
  4. AMBIEN [Concomitant]
     Dosage: 5 MG, 1X/DAY AT BEDTIME
     Route: 048
  5. BENADRYL [Concomitant]
     Dosage: 25 MG, 4X/DAY AS NEEDED
     Route: 048

REACTIONS (2)
  - Stevens-Johnson syndrome [Unknown]
  - Toxic epidermal necrolysis [Unknown]
